FAERS Safety Report 8623915-7 (Version None)
Quarter: 2012Q3

REPORT INFORMATION
  Report Type: 
  Country: None (occurrence: None)
  Receive Date: 20120827
  Receipt Date: 20120821
  Transmission Date: 20120928
  Serious: Yes (Hospitalization, Other)
  Sender: FDA-Public Use
  Company Number: PHEH2012US006045

PATIENT
  Sex: Male
  Weight: 74.376 kg

DRUGS (11)
  1. FAMPRIDINE [Concomitant]
     Dosage: 10 MG, UNK
  2. GILENYA [Suspect]
     Indication: MULTIPLE SCLEROSIS
     Dosage: 0.5 MG, QD
     Route: 048
     Dates: start: 20110628, end: 20120221
  3. CLARITIN [Concomitant]
     Dosage: 10 MG, QD
     Route: 048
  4. TRIAMCINOLONE [Concomitant]
     Dosage: UNK UKN, UNK
  5. SEREVENT [Concomitant]
     Dosage: 50 UG, BID
  6. FLOMAX [Concomitant]
     Dosage: 1 DF, QD
     Route: 048
     Dates: start: 20110510
  7. NEURONTIN [Concomitant]
     Dosage: 300 MG, TID
     Route: 048
  8. ATROVENT [Concomitant]
     Dosage: 2 DF, BID
  9. NASONEX [Concomitant]
     Dosage: 2 DF, QD
  10. ALBUTEROL [Concomitant]
     Dosage: UNK UKN, PRN
  11. BACLOFEN [Concomitant]
     Dosage: 1 DF, TID
     Route: 048
     Dates: start: 20110330

REACTIONS (9)
  - HYPERAESTHESIA [None]
  - MUSCLE SPASMS [None]
  - MACULAR OEDEMA [None]
  - HEADACHE [None]
  - VISION BLURRED [None]
  - PAPILLOEDEMA [None]
  - PAIN IN EXTREMITY [None]
  - HEART RATE DECREASED [None]
  - VISUAL ACUITY REDUCED [None]
